FAERS Safety Report 6763850-2 (Version None)
Quarter: 2010Q2

REPORT INFORMATION
  Report Type: 
  Country: None (occurrence: None)
  Receive Date: 20100610
  Receipt Date: 20100601
  Transmission Date: 20101027
  Serious: Yes (Hospitalization)
  Sender: FDA-Public Use
  Company Number: FR-PFIZER INC-2010068312

PATIENT
  Age: 60 Year
  Sex: Male

DRUGS (9)
  1. TRIFLUCAN [Suspect]
     Indication: RADIATION OESOPHAGITIS
     Dosage: 50 MG, 1X/DAY
     Route: 048
     Dates: start: 20090402, end: 20090421
  2. FLUOROURACIL [Suspect]
     Indication: LIP AND/OR ORAL CAVITY CANCER
     Dosage: 1 CURE
     Route: 042
     Dates: start: 20090312, end: 20090312
  3. CORDARONE [Suspect]
     Indication: ATRIAL FLUTTER
     Dosage: 200 MG, 1X/DAY
     Route: 048
     Dates: start: 20090205, end: 20090410
  4. LANSOPRAZOLE [Suspect]
     Dosage: 1 DF, 1X/DAY
     Route: 048
     Dates: start: 20090402, end: 20090421
  5. VOGALENE [Suspect]
     Indication: NAUSEA
     Dosage: 2.5 MG, 3X/DAY
     Route: 048
     Dates: start: 20090402, end: 20090421
  6. CISPLATIN [Suspect]
     Indication: LIP AND/OR ORAL CAVITY CANCER
     Dosage: 1 CURE
     Route: 042
     Dates: start: 20090312, end: 20090312
  7. ACTISKENAN [Concomitant]
     Dosage: UNK
     Route: 048
     Dates: end: 20090421
  8. ACTISKENAN [Concomitant]
     Dosage: UNK
     Dates: start: 20090507
  9. PARACETAMOL [Concomitant]
     Dosage: UNK
     Dates: end: 20090421

REACTIONS (1)
  - DRUG ERUPTION [None]
